FAERS Safety Report 9370300 (Version 1)
Quarter: 2013Q2

REPORT INFORMATION
  Report Type: Spontaneous
  Country: US (occurrence: US)
  Receive Date: 20130626
  Receipt Date: 20130626
  Transmission Date: 20140414
  Serious: No
  Sender: FDA-Public Use
  Company Number: US-009507513-1304USA015531

PATIENT
  Age: 3 Year
  Sex: Male
  Weight: 15.42 kg

DRUGS (2)
  1. CLARITIN CHEWABLE TABLETS [Suspect]
     Indication: HYPERSENSITIVITY
     Dosage: 5 MG, QD
     Route: 048
     Dates: start: 201304
  2. CLARITIN CHEWABLE TABLETS [Suspect]
     Dosage: 10 MG, ONCE
     Route: 048
     Dates: start: 20130413

REACTIONS (1)
  - Accidental overdose [Recovering/Resolving]
